FAERS Safety Report 6016712-2 (Version None)
Quarter: 2008Q4

REPORT INFORMATION
  Report Type: 
  Country: None (occurrence: None)
  Receive Date: 20081222
  Receipt Date: 20081206
  Transmission Date: 20090506
  Serious: No
  Sender: FDA-Public Use
  Company Number: US-B.I. PHARMACEUTICALS,INC./RIDGEFIELD-2008-BP-18365BP

PATIENT
  Sex: Male

DRUGS (2)
  1. FLOMAX [Suspect]
     Indication: PROSTATOMEGALY
     Dosage: .4MG
     Route: 048
     Dates: start: 20081202
  2. SYNTHROID [Concomitant]
     Indication: THYROID DISORDER
     Dosage: 75MG
     Route: 048
     Dates: start: 20030101

REACTIONS (1)
  - EJACULATION FAILURE [None]
